FAERS Safety Report 4976255-1 (Version None)
Quarter: 2006Q2

REPORT INFORMATION
  Report Type: 
  Country: None (occurrence: None)
  Receive Date: 20060412
  Receipt Date: 20060327
  Transmission Date: 20061013
  Serious: Yes (Life-Threatening, Hospitalization)
  Sender: FDA-Public Use
  Company Number: 2006BI004876

PATIENT
  Age: 44 Year
  Sex: Female
  Weight: 90 kg

DRUGS (6)
  1. ZEVALIN [Suspect]
     Indication: BONE MARROW CONDITIONING REGIMEN
     Dosage: 0.4 MCI/KG; 1X; IV
     Route: 042
  2. RITUXIMAB [Concomitant]
  3. BCNU [Concomitant]
  4. ETOPOSIDE [Concomitant]
  5. ARACYTINE [Concomitant]
  6. MELPHALAN [Concomitant]

REACTIONS (1)
  - RENAL FAILURE ACUTE [None]
